FAERS Safety Report 5720558-X (Version None)
Quarter: 2008Q2

REPORT INFORMATION
  Report Type: 
  Country: None (occurrence: None)
  Receive Date: 20080424
  Receipt Date: 20080424
  Transmission Date: 20081010
  Serious: Yes (Hospitalization)
  Sender: FDA-Public Use
  Company Number: None

PATIENT
  Age: 56 Year
  Sex: Male
  Weight: 95.9 kg

DRUGS (1)
  1. CARBAMAZEPINE [Suspect]
     Indication: NEUROPATHY PERIPHERAL
     Dosage: 400 MG   BID   PO
     Route: 048
     Dates: start: 20080417, end: 20080421

REACTIONS (3)
  - ASTHENIA [None]
  - DIZZINESS [None]
  - VISION BLURRED [None]
